FAERS Safety Report 17032299 (Version 1)
Quarter: 2019Q4

REPORT INFORMATION
  Report Type: Spontaneous
  Country: CA (occurrence: CA)
  Receive Date: 20191114
  Receipt Date: 20191114
  Transmission Date: 20200122
  Serious: Yes (Other)
  Sender: FDA-Public Use
  Company Number: CA-009507513-1911CAN002173

PATIENT
  Age: 69 Year
  Sex: Female

DRUGS (1)
  1. PRINIVIL [Suspect]
     Active Substance: LISINOPRIL
     Indication: HYPERTENSION
     Dosage: 20.0 MILLIGRAM, 1 EVERY 1 DAY(S)
     Route: 048

REACTIONS (2)
  - Product substitution issue [Recovered/Resolved]
  - Blood pressure abnormal [Recovered/Resolved]
